FAERS Safety Report 10873386 (Version 3)
Quarter: 2015Q3

REPORT INFORMATION
  Report Type: Spontaneous
  Country: JP (occurrence: JP)
  Receive Date: 20150227
  Receipt Date: 20150723
  Transmission Date: 20151125
  Serious: Yes (Hospitalization)
  Sender: FDA-Public Use
  Company Number: JP-SHIONOGI, INC-2015000217

PATIENT
  Age: 42 Year
  Sex: Female
  Weight: 65.7 kg

DRUGS (3)
  1. FINIBAX [Suspect]
     Active Substance: DORIPENEM MONOHYDRATE
     Indication: TUBO-OVARIAN ABSCESS
     Dosage: 0.25 G, TID
     Route: 041
     Dates: start: 20150131, end: 20150206
  2. FINIBAX [Suspect]
     Active Substance: DORIPENEM MONOHYDRATE
     Dosage: 0.5 G, TID
     Route: 041
     Dates: start: 20150207, end: 20150216
  3. CIPROXAN                           /00697202/ [Concomitant]
     Active Substance: CIPROFLOXACIN
     Indication: TUBO-OVARIAN ABSCESS
     Dosage: 600 MG, QD
     Route: 041
     Dates: start: 20150204, end: 20150213

REACTIONS (1)
  - Antidiuretic hormone abnormality [Recovering/Resolving]

NARRATIVE: CASE EVENT DATE: 20150202
